FAERS Safety Report 13071198 (Version 2)
Quarter: 2017Q1

REPORT INFORMATION
  Report Type: Report from Study
  Country: CO (occurrence: CO)
  Receive Date: 20161229
  Receipt Date: 20170109
  Transmission Date: 20170428
  Serious: Yes (Other)
  Sender: FDA-Public Use
  Company Number: CO-EMD SERONO-8131997

PATIENT
  Sex: Male
  Weight: 28 kg

DRUGS (1)
  1. SAIZEN [Suspect]
     Active Substance: SOMATROPIN
     Indication: GROWTH HORMONE DEFICIENCY
     Dates: start: 20101028, end: 20160420

REACTIONS (2)
  - Osteochondrosis [Recovered/Resolved]
  - Inappropriate schedule of drug administration [Unknown]
